FAERS Safety Report 21785398 (Version 1)
Quarter: 2022Q4

REPORT INFORMATION
  Report Type: Report from Study
  Country: US (occurrence: US)
  Receive Date: 20221227
  Receipt Date: 20221227
  Transmission Date: 20230113
  Serious: Yes (Other)
  Sender: FDA-Public Use
  Company Number: US-ALLERGAN-2241954US

PATIENT
  Sex: Female

DRUGS (1)
  1. ATOGEPANT [Suspect]
     Active Substance: ATOGEPANT
     Indication: Migraine
     Dosage: UNK
     Dates: start: 20221205, end: 20221214

REACTIONS (6)
  - Seizure [Unknown]
  - Formication [Recovering/Resolving]
  - Tremor [Unknown]
  - Eye pain [Unknown]
  - Hypersensitivity [Unknown]
  - Fatigue [Unknown]
